FAERS Safety Report 5577030-X (Version None)
Quarter: 2007Q4

REPORT INFORMATION
  Report Type: 
  Country: None (occurrence: None)
  Receive Date: 20071228
  Receipt Date: 20071130
  Transmission Date: 20080405
  Serious: No
  Sender: FDA-Public Use
  Company Number: US-BOEHRINGER INGELHEIM PHARMACEUTICALS, INC.-2007-BP-24207BP

PATIENT
  Sex: Female

DRUGS (1)
  1. MIRAPEX [Suspect]
     Indication: MUSCLE SPASMS
     Route: 048
     Dates: start: 20071026, end: 20071027

REACTIONS (4)
  - COLD SWEAT [None]
  - HYPERSENSITIVITY [None]
  - NIGHT SWEATS [None]
  - STOMACH DISCOMFORT [None]
